FAERS Safety Report 5080004-9 (Version None)
Quarter: 2006Q3

REPORT INFORMATION
  Report Type: 
  Country: None (occurrence: None)
  Receive Date: 20060815
  Receipt Date: 20060509
  Transmission Date: 20061208
  Serious: Yes (Hospitalization)
  Sender: FDA-Public Use
  Company Number: GXKR2006BE02600

PATIENT
  Age: 73 Year
  Sex: Female
  Weight: 33.5 kg

DRUGS (3)
  1. METFORMIN (NGX) [Suspect]
     Indication: DIABETES MELLITUS
     Dosage: 250 MG, BID
     Route: 048
  2. NATEGLINIDE [Suspect]
     Indication: DIABETES MELLITUS
     Dosage: 90 MG, TID
     Route: 048
  3. PIOGLITAZONE HCL [Suspect]
     Indication: DIABETES MELLITUS
     Dosage: 15 MG, QD
     Route: 048

REACTIONS (8)
  - ABDOMINAL PAIN [None]
  - ANOREXIA [None]
  - CHOLESTASIS [None]
  - FATIGUE [None]
  - HEPATITIS ACUTE [None]
  - JAUNDICE [None]
  - NAUSEA [None]
  - VOMITING [None]
